FAERS Safety Report 4967408-7 (Version None)
Quarter: 2006Q2

REPORT INFORMATION
  Report Type: 
  Country: None (occurrence: None)
  Receive Date: 20060407
  Receipt Date: 20060407
  Transmission Date: 20061013
  Serious: Yes (Other)
  Sender: FDA-Public Use
  Company Number: None

PATIENT
  Age: 46 Year
  Sex: Male
  Weight: 192 kg

DRUGS (8)
  1. KETOROLAC TROMETHAMINE [Suspect]
     Indication: PAIN
     Dosage: 10 MILLIGRAMS  TWICE DAILY PO
     Route: 048
     Dates: start: 20060320, end: 20060325
  2. CLONIDINE [Concomitant]
  3. CYCLOBENZAPRINE HCL [Concomitant]
  4. DIAZEPAM [Concomitant]
  5. DICYCLOMINE [Concomitant]
  6. ESZOPICLONE [Concomitant]
  7. PANTOPRAZOLE [Concomitant]
  8. PREDNISONE TAPER [Concomitant]

REACTIONS (4)
  - OEDEMA PERIPHERAL [None]
  - PAIN [None]
  - PITTING OEDEMA [None]
  - WHEELCHAIR USER [None]
